FAERS Safety Report 5315842-8 (Version None)
Quarter: 2007Q2

REPORT INFORMATION
  Report Type: 
  Country: None (occurrence: None)
  Receive Date: 20070503
  Receipt Date: 20070424
  Transmission Date: 20071010
  Serious: Yes (Death, Life-Threatening)
  Sender: FDA-Public Use
  Company Number: JP-JNJFOC-20070105173

PATIENT
  Sex: Male
  Weight: 37 kg

DRUGS (23)
  1. REMICADE [Suspect]
     Route: 042
  2. REMICADE [Suspect]
     Route: 042
  3. REMICADE [Suspect]
     Route: 042
  4. REMICADE [Suspect]
     Route: 042
  5. REMICADE [Suspect]
     Route: 042
  6. REMICADE [Suspect]
     Indication: RHEUMATOID ARTHRITIS
     Route: 042
  7. RHEUMATREX [Suspect]
     Indication: RHEUMATOID ARTHRITIS
     Route: 048
  8. PREDNISOLONE [Suspect]
     Route: 048
  9. PREDNISOLONE [Suspect]
     Indication: RHEUMATOID ARTHRITIS
     Route: 048
  10. LOXONIN [Suspect]
     Indication: RHEUMATOID ARTHRITIS
     Route: 048
  11. VOLTAREN [Suspect]
     Indication: RHEUMATOID ARTHRITIS
  12. CYTOTEC [Suspect]
     Indication: DRUG USE FOR UNKNOWN INDICATION
     Route: 048
  13. ADALAT [Suspect]
     Indication: DRUG USE FOR UNKNOWN INDICATION
     Route: 048
  14. ONEALFA [Suspect]
     Indication: DRUG USE FOR UNKNOWN INDICATION
     Route: 048
  15. DEPAS [Suspect]
     Indication: DRUG USE FOR UNKNOWN INDICATION
     Route: 048
  16. TAIPROTON [Suspect]
     Indication: DRUG USE FOR UNKNOWN INDICATION
     Route: 048
  17. ADRENAL HORMONE PREPARATIONS [Concomitant]
     Indication: RHEUMATOID ARTHRITIS
  18. FERROMIA [Concomitant]
     Route: 048
  19. OLMETEC [Concomitant]
     Route: 048
  20. OXYCONTIN [Concomitant]
     Indication: DRUG USE FOR UNKNOWN INDICATION
  21. MELPHALAN [Concomitant]
  22. MELPHALAN [Concomitant]
     Indication: DRUG USE FOR UNKNOWN INDICATION
  23. CYCLOPHOSPHAMIDE [Concomitant]
     Indication: DRUG USE FOR UNKNOWN INDICATION

REACTIONS (2)
  - AORTIC ANEURYSM [None]
  - MULTIPLE MYELOMA [None]
